FAERS Safety Report 19740780 (Version 1)
Quarter: 2021Q3

REPORT INFORMATION
  Report Type: Spontaneous
  Country: US (occurrence: US)
  Receive Date: 20210825
  Receipt Date: 20210825
  Transmission Date: 20211014
  Serious: No
  Sender: FDA-Public Use
  Company Number: US-DRREDDYS-SPO/USA/21/0139300

PATIENT
  Age: 26 Year
  Sex: Female

DRUGS (1)
  1. ZENATANE [Suspect]
     Active Substance: ISOTRETINOIN
     Indication: PRODUCT USED FOR UNKNOWN INDICATION
     Dosage: RMA ISSUE DATE: 17/APRIL/2021 12:47:28 PM, 21/MAY/2021 10:05:47 AM, 21/JUNE/2021 4:32:06 PM, 21/JULY

REACTIONS (1)
  - Arthralgia [Unknown]
